FAERS Safety Report 16159872 (Version 2)
Quarter: 2019Q2

REPORT INFORMATION
  Report Type: Spontaneous
  Country: US (occurrence: US)
  Receive Date: 20190404
  Receipt Date: 20190416
  Transmission Date: 20190711
  Serious: No
  Sender: FDA-Public Use
  Company Number: US-JNJFOC-20190319715

PATIENT
  Sex: Female
  Weight: 58.97 kg

DRUGS (1)
  1. TYLENOL EXTRA STRENGTH [Suspect]
     Active Substance: ACETAMINOPHEN
     Indication: TEMPOROMANDIBULAR JOINT SYNDROME
     Dosage: CONSUMER TOOK 7 PILLS TOTAL A DAY TO KEEP UNDER THE 4000 MG LIMIT.
     Route: 048
     Dates: start: 20190310

REACTIONS (2)
  - Incorrect dose administered [Unknown]
  - Nausea [Not Recovered/Not Resolved]
